FAERS Safety Report 19104492 (Version 1)
Quarter: 2021Q2

REPORT INFORMATION
  Report Type: Spontaneous
  Country: US (occurrence: US)
  Receive Date: 20210407
  Receipt Date: 20210407
  Transmission Date: 20210717
  Serious: No
  Sender: FDA-Public Use
  Company Number: US-BAYER-2021-114038

PATIENT
  Age: 68 Year
  Sex: Female

DRUGS (5)
  1. ALEVE [Suspect]
     Active Substance: NAPROXEN SODIUM
     Indication: ABDOMINAL PAIN LOWER
  2. ALEVE [Suspect]
     Active Substance: NAPROXEN SODIUM
     Indication: ANALGESIC THERAPY
  3. TYLENOL WITH CODEINE [Concomitant]
     Active Substance: ACETAMINOPHEN\CODEINE PHOSPHATE
  4. INLYTA [Concomitant]
     Active Substance: AXITINIB
     Indication: RENAL CANCER
     Dosage: 5 MG TWICE DAILY
     Dates: start: 20210215
  5. ALEVE [Suspect]
     Active Substance: NAPROXEN SODIUM
     Indication: GROIN PAIN

REACTIONS (4)
  - Headache [None]
  - Drug ineffective [Unknown]
  - Tremor [None]
  - Thinking abnormal [None]
